FAERS Safety Report 9906244 (Version 2)
Quarter: 2014Q2

REPORT INFORMATION
  Report Type: Report from Study
  Country: JP (occurrence: JP)
  Receive Date: 20140218
  Receipt Date: 20140414
  Transmission Date: 20141212
  Serious: Yes (Hospitalization, Other)
  Sender: FDA-Public Use
  Company Number: JP-TAKEDA-2014TJP001575

PATIENT
  Age: 68 Year
  Sex: Female
  Weight: 51 kg

DRUGS (17)
  1. PIOGLITAZONE [Suspect]
     Indication: TYPE 2 DIABETES MELLITUS
     Dosage: 15 MG, 1 DAYS
     Route: 048
     Dates: start: 20120508, end: 20121004
  2. BLOPRESS [Concomitant]
     Dosage: UNK
     Route: 048
  3. LEVEMIR [Concomitant]
     Indication: TYPE 2 DIABETES MELLITUS
     Dosage: 24 IU, QD
     Route: 050
     Dates: start: 20120107, end: 20120604
  4. LEVEMIR [Concomitant]
     Dosage: 26 IU, QD
     Route: 050
     Dates: start: 20120605, end: 20120803
  5. LEVEMIR [Concomitant]
     Dosage: 28 IU, QD
     Route: 050
     Dates: start: 20120804, end: 20120831
  6. LEVEMIR [Concomitant]
     Dosage: 30 IU, QD
     Route: 050
     Dates: start: 20120901, end: 20121004
  7. SEIBULE [Concomitant]
     Indication: TYPE 2 DIABETES MELLITUS
     Dosage: 150 MG, 1 DAYS
     Route: 048
     Dates: start: 20091015
  8. NIFELANTERN CR [Concomitant]
     Dosage: UNK
     Route: 048
  9. DAIOKANZOTO [Concomitant]
     Dosage: UNK
     Route: 048
  10. SENNOSIDE                          /00571901/ [Concomitant]
     Dosage: UNK
     Route: 048
  11. CRESTOR [Concomitant]
     Dosage: UNK
     Route: 048
  12. OMEPRAZOLE [Concomitant]
     Dosage: UNK
     Route: 048
  13. ECABET NA [Concomitant]
     Dosage: UNK
     Route: 048
  14. ECABET NA [Concomitant]
     Dosage: UNK
     Route: 048
  15. MAGNESIUM OXIDE [Concomitant]
     Dosage: UNK
     Route: 048
  16. SUCRALFATE [Concomitant]
     Dosage: UNK
     Route: 048
  17. REBAMIPIDE [Concomitant]
     Dosage: UNK
     Route: 048

REACTIONS (2)
  - Gastric ulcer [Recovering/Resolving]
  - Condition aggravated [Recovering/Resolving]
